FAERS Safety Report 9759173 (Version 2)
Quarter: 2014Q1

REPORT INFORMATION
  Report Type: Spontaneous
  Country: JP (occurrence: JP)
  Receive Date: 20131216
  Receipt Date: 20140120
  Transmission Date: 20141002
  Serious: Yes (Hospitalization)
  Sender: FDA-Public Use
  Company Number: JP-BAYER-2013-149570

PATIENT
  Age: 83 Year
  Sex: Female
  Weight: 43 kg

DRUGS (2)
  1. NEXAVAR [Suspect]
     Indication: HEPATOCELLULAR CARCINOMA
     Dosage: DAILY DOSE 400 MG
     Route: 048
     Dates: start: 20130822, end: 20130827
  2. NEXAVAR [Suspect]
     Indication: HEPATOCELLULAR CARCINOMA
     Dosage: DAILY DOSE 200 MG
     Route: 048
     Dates: start: 20130904

REACTIONS (3)
  - Chylothorax [Recovered/Resolved]
  - Pancreatic enzymes increased [None]
  - Blood triglycerides increased [Recovered/Resolved]
